FAERS Safety Report 9486821 (Version 3)
Quarter: 2013Q4

REPORT INFORMATION
  Report Type: Spontaneous
  Country: IT (occurrence: IT)
  Receive Date: 20130829
  Receipt Date: 20131125
  Transmission Date: 20140711
  Serious: Yes (Other)
  Sender: FDA-Public Use
  Company Number: IT-FRI-1000048135

PATIENT
  Age: 64 Year
  Sex: Female

DRUGS (5)
  1. NEBIVOLOL [Suspect]
     Indication: HYPERTENSION
     Dosage: 2.5 MG
     Route: 048
     Dates: start: 20130715, end: 20130816
  2. NEBIVOLOL [Suspect]
     Dosage: 2.5 MG
     Route: 048
     Dates: start: 2013, end: 20130902
  3. XANAX [Concomitant]
     Dosage: 0.5 MG
  4. CIPRALEX [Concomitant]
     Dosage: 5 GTT
  5. LASIX [Concomitant]
     Dosage: .5 TAB QOD

REACTIONS (5)
  - Tongue oedema [Recovering/Resolving]
  - Lip oedema [Recovering/Resolving]
  - Rash [Recovering/Resolving]
  - Hyperhidrosis [Recovering/Resolving]
  - Asthenia [Recovering/Resolving]
